FAERS Safety Report 25412728 (Version 1)
Quarter: 2025Q2

REPORT INFORMATION
  Report Type: Spontaneous
  Country: CN (occurrence: CN)
  Receive Date: 20250609
  Receipt Date: 20250609
  Transmission Date: 20250716
  Serious: Yes (Other)
  Sender: CSL BEHRING
  Company Number: CN-BEH-2025208631

PATIENT
  Age: 58 Year
  Sex: Female
  Weight: 70 kg

DRUGS (9)
  1. ALBURX [Suspect]
     Active Substance: ALBUMIN HUMAN
     Indication: Hypoproteinaemia
     Dosage: 10 G, OD
     Route: 041
     Dates: start: 20250603, end: 20250603
  2. PHOSPHOLIPID [Concomitant]
     Active Substance: PHOSPHOLIPID
     Indication: Liver disorder
     Route: 041
     Dates: start: 20250529, end: 20250604
  3. PHOSPHOLIPID [Concomitant]
     Active Substance: PHOSPHOLIPID
     Indication: Enzyme abnormality
  4. Compound glycyrrhizin [Concomitant]
     Indication: Liver disorder
     Route: 041
     Dates: start: 20250529, end: 20250604
  5. Compound glycyrrhizin [Concomitant]
     Indication: Enzyme level increased
  6. Dexamethasone sodium phosphate Eipico [Concomitant]
     Indication: Chest discomfort
     Route: 041
  7. Dexamethasone sodium phosphate Eipico [Concomitant]
     Indication: Dyspnoea
  8. EPINEPHRINE [Concomitant]
     Active Substance: EPINEPHRINE
     Indication: Chest discomfort
     Route: 030
  9. EPINEPHRINE [Concomitant]
     Active Substance: EPINEPHRINE
     Indication: Dyspnoea

REACTIONS (3)
  - Chest discomfort [Recovered/Resolved]
  - Dyspnoea [Recovered/Resolved]
  - Oxygen saturation decreased [Recovering/Resolving]

NARRATIVE: CASE EVENT DATE: 20250603
